FAERS Safety Report 6656885-1 (Version None)
Quarter: 2010Q1

REPORT INFORMATION
  Report Type: 
  Country: None (occurrence: None)
  Receive Date: 20100329
  Receipt Date: 20100329
  Transmission Date: 20100710
  Serious: No
  Sender: FDA-Public Use
  Company Number: None

PATIENT
  Age: 53 Year
  Sex: Female
  Weight: 76.2043 kg

DRUGS (1)
  1. GELNIQUE [Suspect]
     Indication: HYPERTONIC BLADDER
     Dosage: 1 PACKET DAILY TOP
     Route: 061
     Dates: start: 20100201, end: 20100326

REACTIONS (5)
  - ABDOMINAL DISTENSION [None]
  - HYPOAESTHESIA [None]
  - JOINT SWELLING [None]
  - PARAESTHESIA [None]
  - WEIGHT INCREASED [None]
